FAERS Safety Report 17361821 (Version 1)
Quarter: 2020Q1

REPORT INFORMATION
  Report Type: Report from Study
  Country: EG (occurrence: EG)
  Receive Date: 20200203
  Receipt Date: 20200203
  Transmission Date: 20200409
  Serious: Yes (Other)
  Sender: FDA-Public Use
  Company Number: EG-JNJFOC-20200139229

PATIENT

DRUGS (1)
  1. RIVAROXABAN [Suspect]
     Active Substance: RIVAROXABAN
     Indication: CARDIOVASCULAR DISORDER
     Dosage: 20 MG ONCE EVERY 24 HRS
     Route: 064
     Dates: start: 2018, end: 202001

REACTIONS (2)
  - Growth retardation [Unknown]
  - Foetal exposure timing unspecified [Unknown]
